FAERS Safety Report 4677508-7 (Version None)
Quarter: 2005Q2

REPORT INFORMATION
  Report Type: 
  Country: None (occurrence: None)
  Receive Date: 20050527
  Receipt Date: 20050527
  Transmission Date: 20051028
  Serious: Yes (Life-Threatening, Hospitalization)
  Sender: FDA-Public Use
  Company Number: None

PATIENT
  Age: 53 Year
  Sex: Female
  Weight: 135.1719 kg

DRUGS (7)
  1. CLONIDINE [Suspect]
     Indication: HYPERTENSION
     Dosage: 1 TAB.  TWICE DAILY ORAL
     Route: 048
     Dates: start: 20050405, end: 20050520
  2. COZAAR [Concomitant]
  3. POTASSIUM CL [Concomitant]
  4. TOPROL-XL [Concomitant]
  5. FUROSEMIDE [Concomitant]
  6. TRAMADOL HCL [Concomitant]
  7. SULAR [Concomitant]

REACTIONS (6)
  - DIZZINESS [None]
  - HEART RATE DECREASED [None]
  - MALAISE [None]
  - NAUSEA [None]
  - REFUSAL OF TREATMENT BY PATIENT [None]
  - VOMITING [None]
